FAERS Safety Report 5581382-4 (Version None)
Quarter: 2008Q1

REPORT INFORMATION
  Report Type: 
  Country: None (occurrence: None)
  Receive Date: 20080104
  Receipt Date: 20071025
  Transmission Date: 20080703
  Serious: No
  Sender: FDA-Public Use
  Company Number: US-BAYER-US-2007-041024

PATIENT
  Age: 21 Year
  Sex: Female
  Weight: 84 kg

DRUGS (3)
  1. YAZ [Suspect]
     Indication: ACNE
     Route: 048
     Dates: start: 20071001
  2. VITAMINS OTC [Concomitant]
  3. FISH OIL [Concomitant]

REACTIONS (1)
  - ACNE [None]
